FAERS Safety Report 8476262-0 (Version None)
Quarter: 2012Q2

REPORT INFORMATION
  Report Type: 
  Country: None (occurrence: None)
  Receive Date: 20120628
  Receipt Date: 20120622
  Transmission Date: 20120825
  Serious: No
  Sender: FDA-Public Use
  Company Number: US-B.I. PHARMACEUTICALS,INC./RIDGEFIELD-2012-BP-14281BP

PATIENT
  Sex: Male
  Weight: 72.57 kg

DRUGS (5)
  1. PRADAXA [Suspect]
     Indication: ARRHYTHMIA
     Dosage: 150 MG
     Dates: start: 20100101
  2. NIFEDIPINE [Concomitant]
     Indication: HYPERTENSION
     Dosage: 30 MG
  3. ENALIPRIL [Concomitant]
     Indication: HYPERTENSION
     Dosage: 20 MG
  4. METOPROLOL TARTRATE [Concomitant]
     Indication: HYPERTENSION
     Dosage: 25 MG
  5. SIMVASTATIN [Concomitant]
     Indication: HYPERTENSION
     Dosage: 20 MG

REACTIONS (2)
  - EAR HAEMORRHAGE [None]
  - HEADACHE [None]
